FAERS Safety Report 22530692 (Version 1)
Quarter: 2023Q2

REPORT INFORMATION
  Report Type: Spontaneous
  Country: US (occurrence: US)
  Receive Date: 20230607
  Receipt Date: 20230607
  Transmission Date: 20230722
  Serious: No
  Sender: FDA-Public Use
  Company Number: US-SA-SAC20230605000577

PATIENT
  Sex: Male

DRUGS (1)
  1. DUPIXENT [Suspect]
     Active Substance: DUPILUMAB
     Dosage: 300 MG, OTHER FREQUENCY
     Route: 058

REACTIONS (6)
  - Abdominal pain upper [Unknown]
  - Skin haemorrhage [Unknown]
  - Blister [Unknown]
  - Pustule [Unknown]
  - Urticaria [Unknown]
  - Rash [Unknown]
